FAERS Safety Report 24700839 (Version 1)
Quarter: 2024Q4

REPORT INFORMATION
  Report Type: Spontaneous
  Country: DE (occurrence: DE)
  Receive Date: 20241205
  Receipt Date: 20241205
  Transmission Date: 20250115
  Serious: Yes (Other)
  Sender: UCB
  Company Number: DE-UCBSA-2024062678

PATIENT
  Age: 79 Year
  Sex: Female

DRUGS (2)
  1. LEVETIRACETAM [Suspect]
     Active Substance: LEVETIRACETAM
     Indication: Product used for unknown indication
     Dosage: 500 MILLIGRAM, 2X/DAY (BID)
     Dates: start: 202401
  2. LEVETIRACETAM [Suspect]
     Active Substance: LEVETIRACETAM
     Dosage: 1000 MILLIGRAM, 2X/DAY (BID)

REACTIONS (2)
  - Renal failure [Unknown]
  - Anticonvulsant drug level increased [Unknown]

NARRATIVE: CASE EVENT DATE: 20240101
